FAERS Safety Report 11590179 (Version 1)
Quarter: 2015Q4

REPORT INFORMATION
  Report Type: Report from Study
  Country: BR (occurrence: BR)
  Receive Date: 20151002
  Receipt Date: 20151002
  Transmission Date: 20160304
  Serious: Yes (Hospitalization)
  Sender: FDA-Public Use
  Company Number: BR-ABBVIE-15P-020-1472236-00

PATIENT
  Age: 10 Month
  Sex: Male
  Weight: 6.5 kg

DRUGS (5)
  1. MOTILIUM [Concomitant]
     Active Substance: DOMPERIDONE
     Indication: GASTROOESOPHAGEAL REFLUX DISEASE
     Dosage: 1.5 MILILITER DAILY
     Route: 048
     Dates: start: 201410
  2. FLIXOTIDE [Concomitant]
     Active Substance: FLUTICASONE PROPIONATE
     Indication: BRONCHOPULMONARY DYSPLASIA
     Dosage: TWO PUFF DAILY
     Route: 055
     Dates: start: 201410
  3. SYNAGIS [Suspect]
     Active Substance: PALIVIZUMAB
     Indication: BRONCHOPULMONARY DYSPLASIA
     Route: 030
     Dates: start: 20150327
  4. PROTOVIT [Concomitant]
     Indication: ANAEMIA NEONATAL
     Dosage: 15 DROP DAILY
     Route: 048
     Dates: start: 201407
  5. VITAMIN A + VITAMIN D (AD-TIL) [Concomitant]
     Indication: VITAMIN SUPPLEMENTATION
     Dosage: TWO DROP DAILY
     Route: 048
     Dates: start: 201506

REACTIONS (5)
  - Viral infection [Recovered/Resolved]
  - Rhinovirus infection [Recovered/Resolved]
  - Fatigue [Recovered/Resolved]
  - Bronchiolitis [Recovered/Resolved]
  - Secretion discharge [Recovered/Resolved]

NARRATIVE: CASE EVENT DATE: 201506
